FAERS Safety Report 6266774-2 (Version None)
Quarter: 2009Q3

REPORT INFORMATION
  Report Type: 
  Country: None (occurrence: None)
  Receive Date: 20090709
  Receipt Date: 20090709
  Transmission Date: 20100115
  Serious: No
  Sender: FDA-Public Use
  Company Number: None

PATIENT
  Age: 62 Year
  Sex: Male

DRUGS (1)
  1. VENOFER [Suspect]
     Indication: ANAEMIA

REACTIONS (2)
  - INFUSION SITE PAIN [None]
  - INFUSION SITE SWELLING [None]
